FAERS Safety Report 15935794 (Version 1)
Quarter: 2019Q1

REPORT INFORMATION
  Report Type: Spontaneous
  Country: US (occurrence: US)
  Receive Date: 20190208
  Receipt Date: 20190208
  Transmission Date: 20190417
  Serious: No
  Sender: FDA-Public Use
  Company Number: US-AMGEN INC.-USASP2019019083

PATIENT
  Age: 74 Year
  Sex: Female

DRUGS (5)
  1. AIMOVIG [Suspect]
     Active Substance: ERENUMAB-AOOE
     Indication: MIGRAINE
  2. AIMOVIG [Suspect]
     Active Substance: ERENUMAB-AOOE
     Indication: HEAD DISCOMFORT
     Dosage: 140 MG, QMO
     Route: 065
     Dates: start: 2018
  3. VALIUM [Concomitant]
     Active Substance: DIAZEPAM
     Dosage: UNK
  4. CLONAZEPAM. [Suspect]
     Active Substance: CLONAZEPAM
     Indication: PRODUCT USED FOR UNKNOWN INDICATION
     Dosage: UNK
     Route: 065
  5. CLONAZEPAM. [Suspect]
     Active Substance: CLONAZEPAM
     Dosage: INCREASED DOSE
     Route: 065

REACTIONS (1)
  - Head discomfort [Not Recovered/Not Resolved]
